FAERS Safety Report 11895501 (Version 1)
Quarter: 2016Q1

REPORT INFORMATION
  Report Type: Spontaneous
  Country: US (occurrence: US)
  Receive Date: 20160107
  Receipt Date: 20160107
  Transmission Date: 20160526
  Serious: Yes (Hospitalization)
  Sender: FDA-Public Use
  Company Number: US-CELGENEUS-USA-2016010711

PATIENT
  Age: 64 Year
  Sex: Male
  Weight: 106.69 kg

DRUGS (2)
  1. POMALYST [Suspect]
     Active Substance: POMALIDOMIDE
     Indication: PLASMA CELL MYELOMA
     Route: 048
     Dates: start: 20150819
  2. POMALYST [Suspect]
     Active Substance: POMALIDOMIDE
     Dosage: 2MG ONE DAY ALTERNATING WITH 3MG NEXT DAY AND REPEAT
     Route: 048
     Dates: start: 201510

REACTIONS (1)
  - Pneumonia [Unknown]

NARRATIVE: CASE EVENT DATE: 20151231
